FAERS Safety Report 6802031-0 (Version None)
Quarter: 2010Q2

REPORT INFORMATION
  Report Type: 
  Country: None (occurrence: None)
  Receive Date: 20100629
  Receipt Date: 20071210
  Transmission Date: 20101027
  Serious: Yes (Other)
  Sender: FDA-Public Use
  Company Number: US-PFIZER INC-2007033483

PATIENT
  Sex: Male

DRUGS (7)
  1. BEXTRA [Suspect]
     Indication: ARTHRALGIA
     Dates: start: 20020809
  2. VIOXX [Suspect]
     Indication: ARTHRALGIA
     Route: 048
     Dates: start: 20020619, end: 20020812
  3. MONOPRIL [Concomitant]
     Indication: HYPERTENSION
     Dates: start: 20020522, end: 20061225
  4. VERAPAMIL [Concomitant]
     Indication: HYPERTENSION
     Dates: start: 20020812, end: 20020912
  5. HYDROCHLOROTHIAZIDE [Concomitant]
     Indication: HYPERTENSION
     Dates: start: 20020522, end: 20061225
  6. PLAVIX [Concomitant]
     Indication: HYPERTENSION
     Dates: start: 20020521, end: 20061225
  7. PLAVIX [Concomitant]
     Indication: CEREBROVASCULAR ACCIDENT

REACTIONS (1)
  - MYOCARDIAL INFARCTION [None]
